FAERS Safety Report 18940371 (Version 2)
Quarter: 2021Q1

REPORT INFORMATION
  Report Type: Report from Study
  Country: CH (occurrence: CH)
  Receive Date: 20210225
  Receipt Date: 20210306
  Transmission Date: 20210420
  Serious: Yes (Hospitalization, Other)
  Sender: FDA-Public Use
  Company Number: CH-TEVA-2021-CH-1883740

PATIENT
  Age: 68 Year
  Sex: Male

DRUGS (98)
  1. FLUDARABIN?TEVA [Suspect]
     Active Substance: FLUDARABINE PHOSPHATE
     Indication: METASTATIC MALIGNANT MELANOMA
     Dosage: 59.53 MILLIGRAM DAILY; 3 DOSES
     Route: 042
     Dates: start: 20210106, end: 20210108
  2. VANCOMYCINE [Concomitant]
     Active Substance: VANCOMYCIN
     Dosage: 1500 MILLIGRAM DAILY; ONCE DAILY
     Route: 042
     Dates: start: 20210115, end: 20210115
  3. ONDANSETRON [Concomitant]
     Active Substance: ONDANSETRON
     Dosage: 8 MILLIGRAM DAILY; ONCE DAILY
     Route: 048
     Dates: start: 20210113, end: 20210114
  4. OLANZAPIN [Concomitant]
     Active Substance: OLANZAPINE
     Indication: PROPHYLAXIS OF NAUSEA AND VOMITING
     Dosage: AS NEEDED
     Route: 048
     Dates: start: 20210107, end: 20210107
  5. CEFTRIAXONE. [Concomitant]
     Active Substance: CEFTRIAXONE
     Indication: SEPSIS
     Dosage: 2 GRAM DAILY; ONCE DAILY
     Route: 042
     Dates: start: 20210108, end: 20210108
  6. POTASSIUM CHLORIDE. [Concomitant]
     Active Substance: POTASSIUM CHLORIDE
     Dosage: 10 MILLIMOL DAILY; ONCE DAILY
     Route: 042
     Dates: start: 20210108, end: 20210110
  7. MAGNESIUM SULFATE. [Concomitant]
     Active Substance: MAGNESIUM SULFATE
     Indication: ATRIAL FIBRILLATION
     Dosage: 2 GRAM DAILY; ONCE DAILY
     Route: 042
     Dates: start: 20210109, end: 20210109
  8. AMIODARONE [Concomitant]
     Active Substance: AMIODARONE
     Dosage: 900 MILLIGRAM DAILY; ONCE DAILY
     Route: 042
     Dates: start: 20210124, end: 20210124
  9. CASPOFUNGINE [Concomitant]
     Active Substance: CASPOFUNGIN
     Indication: FUNGAEMIA
     Dosage: 70 MILLIGRAM DAILY; ONCE DAILY
     Route: 042
     Dates: start: 20210116, end: 20210116
  10. LEVOFLOXACINE [Concomitant]
     Active Substance: LEVOFLOXACIN
     Indication: ANTIBIOTIC PROPHYLAXIS
     Dosage: 500 MILLIGRAM DAILY; ONCE DAILY
     Route: 042
     Dates: start: 20210113, end: 20210113
  11. NORADRENALIN [Concomitant]
     Active Substance: NOREPINEPHRINE\NOREPINEPHRINE BITARTRATE
     Indication: HYPOTENSION
     Dosage: AS NEEDED
     Route: 042
     Dates: start: 20210126, end: 20210127
  12. ESOMEPRAZOLE. [Concomitant]
     Active Substance: ESOMEPRAZOLE MAGNESIUM
     Indication: GASTRIC ULCER
     Dosage: 40 MILLIGRAM DAILY; ONCE DAILY
     Route: 042
     Dates: start: 20210115, end: 20210115
  13. ESOMEPRAZOLE. [Concomitant]
     Active Substance: ESOMEPRAZOLE MAGNESIUM
     Dosage: 40 MILLIGRAM DAILY; ONCE DAILY
     Route: 042
     Dates: start: 20210125, end: 20210128
  14. VALACICLOVIR [Concomitant]
     Active Substance: VALACYCLOVIR HYDROCHLORIDE
     Indication: INFECTION PROPHYLAXIS
     Dosage: 500 MILLIGRAM DAILY; ONCE DAILY
     Route: 048
     Dates: start: 20210112, end: 20210114
  15. OXYCODONE [Concomitant]
     Active Substance: OXYCODONE
     Indication: BLADDER SPASM
     Dosage: 20 MILLIGRAM DAILY; TWICE PER DAY
     Route: 048
     Dates: start: 20210115, end: 20210116
  16. INSULIN [Concomitant]
     Active Substance: INSULIN NOS
     Indication: HYPERGLYCAEMIA
     Dosage: CONTINUOUSLY
     Route: 042
     Dates: start: 20210126, end: 20210128
  17. ONDANSETRON [Concomitant]
     Active Substance: ONDANSETRON
     Dosage: CONTINUOUSLY
     Route: 042
     Dates: start: 20210128, end: 20210128
  18. METRONIDAZOLE. [Concomitant]
     Active Substance: METRONIDAZOLE
     Indication: SEPSIS
     Dosage: 1000 MILLIGRAM DAILY;
     Route: 042
     Dates: start: 20210108, end: 20210109
  19. LACTATED RINGERS SOLUTION [Concomitant]
     Active Substance: CALCIUM CHLORIDE\POTASSIUM CHLORIDE\SODIUM CHLORIDE\SODIUM LACTATE
     Dosage: 250 ML DAILY; ONCE DAILY
     Route: 042
     Dates: start: 20210111, end: 20210111
  20. LEVOTHYROXINE. [Concomitant]
     Active Substance: LEVOTHYROXINE
     Indication: LYMPHOCYTIC HYPOPHYSITIS
     Dosage: 75 MICROGRAM DAILY; ONCE DAILY
     Route: 048
     Dates: start: 20200601, end: 20210112
  21. LEVOTHYROXINE. [Concomitant]
     Active Substance: LEVOTHYROXINE
     Dosage: 125 MICROGRAM DAILY; ONCE DAILY
     Route: 048
     Dates: start: 20200619, end: 20210126
  22. VASELINE PURE [Concomitant]
     Active Substance: PETROLATUM
     Dosage: 1 DOSAGE FORMS DAILY; ONCE DAILY
     Route: 061
     Dates: start: 20210122, end: 20210125
  23. VALACICLOVIR [Concomitant]
     Active Substance: VALACYCLOVIR HYDROCHLORIDE
     Dosage: 500 MILLIGRAM DAILY; ONCE DAILY
     Route: 048
     Dates: start: 20210202
  24. GLUCOSALINE [Concomitant]
     Route: 042
     Dates: start: 20210126, end: 20210128
  25. BACTRIM [Concomitant]
     Active Substance: SULFAMETHOXAZOLE\TRIMETHOPRIM
     Indication: INFECTION PROPHYLAXIS
  26. MESNA. [Concomitant]
     Active Substance: MESNA
     Dosage: 7000 MILLIGRAM DAILY; ONCE DAILY
     Route: 042
     Dates: start: 20210109, end: 20210112
  27. IBUPROFEN. [Concomitant]
     Active Substance: IBUPROFEN
     Indication: SEPSIS
     Dosage: AS NEEDED
     Route: 048
     Dates: start: 20210108, end: 20210108
  28. SYNACTHEN [Concomitant]
     Indication: ACTH STIMULATION TEST
     Dosage: .25 MILLIGRAM DAILY; ONCE DAILY
     Route: 042
     Dates: start: 20210108, end: 20210108
  29. GLUCOSE 5% [Concomitant]
     Active Substance: DEXTROSE
     Indication: RENAL FAILURE
     Dosage: CONTINUOUSLY
     Dates: start: 20210110, end: 20210110
  30. TORASEMIDE [Concomitant]
     Active Substance: TORSEMIDE
     Indication: CAPILLARY LEAK SYNDROME
     Dosage: 10 MILLIGRAM DAILY; ONCE DAILY
     Route: 048
     Dates: start: 20210118, end: 20210121
  31. CLEMASTINE [Concomitant]
     Active Substance: CLEMASTINE
     Indication: PREMEDICATION
     Dosage: THREE DOSES IN TOTAL
     Route: 048
     Dates: start: 20210112, end: 20210114
  32. HEPARIN [Concomitant]
     Active Substance: HEPARIN SODIUM
     Dosage: CONTINUOUSLY
     Route: 042
     Dates: start: 20210202, end: 20210202
  33. FUROSEMIDE. [Concomitant]
     Active Substance: FUROSEMIDE
     Dosage: 40 MILLIGRAM DAILY; AS NEEDED
     Route: 042
     Dates: start: 20210131
  34. DIGOXINE [Concomitant]
     Active Substance: DIGOXIN
     Dosage: .5 MILLIGRAM DAILY; ONCE DAILY
     Route: 042
     Dates: start: 20210126, end: 20210126
  35. METHYLTHIONINIUM CHLORIDE [Concomitant]
     Active Substance: METHYLENE BLUE
     Dosage: 50 MILLIGRAM DAILY; ONCE DAILY
     Route: 042
     Dates: start: 20210113, end: 20210114
  36. GLUCOSALINE [Concomitant]
     Indication: PROPHYLAXIS AGAINST DEHYDRATION
     Route: 042
     Dates: start: 20210126, end: 20210127
  37. IL2 [Suspect]
     Active Substance: ALDESLEUKIN
     Indication: METASTATIC MALIGNANT MELANOMA
     Dosage: ONE HALF?DOSE INFUSION OF IL2 (41.76 X106 IU)
     Route: 042
     Dates: start: 20210114, end: 20210114
  38. ONDANSETRON [Concomitant]
     Active Substance: ONDANSETRON
     Indication: PROPHYLAXIS OF NAUSEA AND VOMITING
     Dosage: AS NEEDED
     Route: 048
     Dates: start: 20210120, end: 20210120
  39. POTASSIUM CHLORIDE. [Concomitant]
     Active Substance: POTASSIUM CHLORIDE
     Indication: PROPHYLAXIS
     Dosage: 20 MILLIMOL DAILY; TWICE DAILY
     Route: 048
     Dates: start: 20210108, end: 20210109
  40. LOPERAMIDE [Concomitant]
     Active Substance: LOPERAMIDE
     Indication: DIARRHOEA
     Dosage: AS NEEDED
     Route: 048
     Dates: start: 20210109, end: 20210109
  41. ACETAMINOPHEN. [Concomitant]
     Active Substance: ACETAMINOPHEN
     Indication: SCIATICA
     Dosage: AS NEEDED
     Route: 048
     Dates: start: 20200101
  42. AMIODARONE [Concomitant]
     Active Substance: AMIODARONE
     Dosage: 900 MILLIGRAM DAILY; ONCE DAILY
     Route: 042
     Dates: start: 20210119, end: 20210120
  43. TORASEMIDE [Concomitant]
     Active Substance: TORSEMIDE
     Indication: WEIGHT INCREASED
     Dosage: 40 MILLIGRAM DAILY; TWICE PER DAY
     Route: 048
     Dates: start: 20210111, end: 20210112
  44. TORASEMIDE [Concomitant]
     Active Substance: TORSEMIDE
     Dosage: 20 MILLIGRAM DAILY; ONCE DAILY
     Route: 048
     Dates: start: 20210121, end: 20210123
  45. MEROPENEM. [Concomitant]
     Active Substance: MEROPENEM
     Indication: SEPSIS
     Dosage: 2 GRAM DAILY; ONCE DAILY
     Route: 042
     Dates: start: 20210115, end: 20210115
  46. ESOMEPRAZOLE. [Concomitant]
     Active Substance: ESOMEPRAZOLE MAGNESIUM
     Dosage: 40 MILLIGRAM DAILY; ONCE DAILY
     Route: 042
     Dates: start: 20210117, end: 20210125
  47. TROSPIUM [Concomitant]
     Active Substance: TROSPIUM
     Dosage: 20 MILLIGRAM DAILY; ONCE DAILY
     Route: 048
     Dates: start: 20210122, end: 20210125
  48. VALACICLOVIR [Concomitant]
     Active Substance: VALACYCLOVIR HYDROCHLORIDE
     Dosage: 1000 MILLIGRAM DAILY; TWICE PER DAY
     Route: 048
     Dates: start: 20210116, end: 20210123
  49. FUROSEMIDE. [Concomitant]
     Active Substance: FUROSEMIDE
     Indication: CAPILLARY LEAK SYNDROME
     Dosage: 20 MILLIGRAM DAILY; ONCE DAILY
     Route: 042
     Dates: start: 20210124, end: 20210124
  50. TETRACOSACTIDE [Concomitant]
     Active Substance: COSYNTROPIN
     Indication: ACTH STIMULATION TEST
     Dosage: .25 MILLIGRAM DAILY; ONCE DAILY
     Route: 042
     Dates: start: 20210126, end: 20210126
  51. CLOMETIAZOLE [Concomitant]
     Active Substance: CLOMETHIAZOLE
     Dosage: 192 MILLIGRAM DAILY; ONCE DAILY
     Route: 048
     Dates: start: 20210112, end: 20210112
  52. METOPROLOL. [Concomitant]
     Active Substance: METOPROLOL
     Dosage: 25 MILLIGRAM DAILY;
     Dates: start: 20210204, end: 20210204
  53. CYCLOPHOSPHAMIDE. [Suspect]
     Active Substance: CYCLOPHOSPHAMIDE
     Indication: METASTATIC MALIGNANT MELANOMA
     Dosage: 6936 MILLIGRAM DAILY; 2 DOSES
     Route: 042
     Dates: start: 20210106, end: 20210107
  54. PALONOSETRON. [Concomitant]
     Active Substance: PALONOSETRON HYDROCHLORIDE
     Indication: CHEMOTHERAPY SIDE EFFECT PROPHYLAXIS
     Dosage: .25 MILLIGRAM DAILY;
     Route: 042
     Dates: start: 20210106, end: 20210106
  55. PIPERACILLIN AND TAZOBACTAM [Concomitant]
     Active Substance: PIPERACILLIN SODIUM\TAZOBACTAM SODIUM
     Indication: SEPSIS
     Dosage: 13.5 GRAM DAILY; EVERY 8 HOURS
     Route: 048
     Dates: start: 20210109, end: 20210114
  56. AMIODARONE [Concomitant]
     Active Substance: AMIODARONE
     Dosage: 600 MILLIGRAM DAILY; 3 TIMES PER DAY
     Route: 048
     Dates: start: 20210113, end: 20210123
  57. LACTATED RINGERS SOLUTION [Concomitant]
     Active Substance: CALCIUM CHLORIDE\POTASSIUM CHLORIDE\SODIUM CHLORIDE\SODIUM LACTATE
     Indication: HYPOTENSION
     Dosage: 500 ML DAILY; ONCE DAILY
     Route: 042
     Dates: start: 20210109, end: 20210111
  58. LACTATED RINGERS SOLUTION [Concomitant]
     Active Substance: CALCIUM CHLORIDE\POTASSIUM CHLORIDE\SODIUM CHLORIDE\SODIUM LACTATE
     Dosage: 500 ML DAILY; ONCE DAILY
     Route: 042
     Dates: start: 20210114, end: 20210116
  59. METOCLOPRAMID [Concomitant]
     Active Substance: METOCLOPRAMIDE
     Indication: NAUSEA
     Dosage: AS NEEDED
     Route: 042
     Dates: start: 20210111, end: 20210111
  60. CASPOFUNGINE [Concomitant]
     Active Substance: CASPOFUNGIN
     Dosage: 50 MILLIGRAM DAILY; ONCE DAILY
     Route: 042
     Dates: start: 20210116, end: 20210129
  61. LEVOFLOXACINE [Concomitant]
     Active Substance: LEVOFLOXACIN
     Dosage: 250 MILLIGRAM DAILY; ONCE DAILY
     Route: 042
     Dates: start: 20210113, end: 20210115
  62. NORADRENALIN [Concomitant]
     Active Substance: NOREPINEPHRINE\NOREPINEPHRINE BITARTRATE
     Indication: ATRIAL FIBRILLATION
     Dosage: CONTINUOUSLY
     Route: 042
     Dates: start: 20210114, end: 20210115
  63. COLECALCIFEROL [Concomitant]
     Active Substance: CHOLECALCIFEROL
     Dosage: 1 DOSAGE FORMS DAILY; ONCE DAILY
     Route: 048
     Dates: start: 20210124, end: 20210125
  64. HEPARIN [Concomitant]
     Active Substance: HEPARIN SODIUM
     Dosage: CONTINUOUSLY
     Route: 042
     Dates: start: 20210202
  65. FUROSEMIDE. [Concomitant]
     Active Substance: FUROSEMIDE
     Dosage: 40 MILLIGRAM DAILY; AS NEEDED
     Route: 042
     Dates: start: 20210126, end: 20210130
  66. APIXABAN [Concomitant]
     Active Substance: APIXABAN
     Indication: ATRIAL FIBRILLATION
     Dosage: 10 MILLIGRAM DAILY;
     Route: 048
     Dates: start: 20210205, end: 20210210
  67. VALGANCICLOVIR. [Concomitant]
     Active Substance: VALGANCICLOVIR
     Indication: CYTOMEGALOVIRUS INFECTION REACTIVATION
     Dosage: 1350 MILLIGRAM DAILY;
     Route: 048
     Dates: start: 20210218
  68. CLOMETIAZIOLE [Concomitant]
     Indication: RENAL FAILURE
     Dosage: 384 MILLIGRAM DAILY;
     Route: 048
     Dates: start: 20210112, end: 20210112
  69. POTASSIUM CHLORIDE. [Concomitant]
     Active Substance: POTASSIUM CHLORIDE
     Dosage: CONTINUOUSLY
     Route: 042
     Dates: start: 20210128, end: 20210128
  70. ACETAMINOPHEN. [Concomitant]
     Active Substance: ACETAMINOPHEN
     Indication: BACK PAIN
     Dosage: AS NEEDED
     Route: 048
     Dates: start: 20210109, end: 20210111
  71. AMIODARONE [Concomitant]
     Active Substance: AMIODARONE
     Dosage: 1200 MILLIGRAM DAILY; 3 TIMES PER DAY
     Route: 048
     Dates: start: 20210111, end: 20210113
  72. PETHIDINE [Concomitant]
     Active Substance: MEPERIDINE
     Indication: CHILLS
     Dosage: AS NEEDED
     Route: 042
     Dates: start: 20210113, end: 20210114
  73. TROSPIUM [Concomitant]
     Active Substance: TROSPIUM
     Indication: HAEMATURIA
     Dosage: 40 MILLIGRAM DAILY; TWICE PER DAY
     Route: 048
     Dates: start: 20210114, end: 20210117
  74. LORAZEPAM. [Concomitant]
     Active Substance: LORAZEPAM
     Indication: ANXIETY
     Dosage: 1 MILLIGRAM DAILY;
     Route: 048
     Dates: start: 20210122, end: 20210122
  75. OXYCODONE [Concomitant]
     Active Substance: OXYCODONE
     Indication: BACK PAIN
     Dosage: 15 MILLIGRAM DAILY; 3 TIMES PER DAY
     Route: 048
     Dates: start: 20210115, end: 20210115
  76. HEPARIN [Concomitant]
     Active Substance: HEPARIN SODIUM
     Indication: THROMBOSIS PROPHYLAXIS
     Dosage: CONTINUOUSLY
     Route: 042
     Dates: start: 20210126, end: 20210128
  77. HEPARIN [Concomitant]
     Active Substance: HEPARIN SODIUM
     Dosage: CONTINUOUSLY
     Route: 042
     Dates: start: 20210128, end: 20210202
  78. PEGFILGASTRIM [Concomitant]
     Active Substance: PEGFILGRASTIM
     Dosage: 6 MILLIGRAM DAILY;
     Route: 058
     Dates: start: 20210113, end: 20210113
  79. MESNA. [Concomitant]
     Active Substance: MESNA
     Dosage: 3000 MILLIGRAM DAILY; ONCE DAILY
     Route: 042
     Dates: start: 20210109, end: 20210109
  80. AMIODARONE [Concomitant]
     Active Substance: AMIODARONE
     Indication: ATRIAL FIBRILLATION
     Dosage: CONTINUOUSLY
     Route: 042
     Dates: start: 20210109, end: 20210111
  81. LACTATED RINGERS SOLUTION [Concomitant]
     Active Substance: CALCIUM CHLORIDE\POTASSIUM CHLORIDE\SODIUM CHLORIDE\SODIUM LACTATE
     Dosage: 250 ML DAILY; ONCE DAILY
     Route: 042
     Dates: start: 20210126, end: 20210126
  82. MEROPENEM. [Concomitant]
     Active Substance: MEROPENEM
     Dosage: .75 GRAM DAILY; TWICE DAILY
     Route: 042
     Dates: start: 20210115, end: 20210119
  83. ESOMEPRAZOLE. [Concomitant]
     Active Substance: ESOMEPRAZOLE MAGNESIUM
     Dosage: 40 MILLIGRAM DAILY; ONCE DAILY
     Route: 048
     Dates: start: 20210128
  84. CEFEPIME [Concomitant]
     Active Substance: CEFEPIME HYDROCHLORIDE
     Indication: SEPSIS
     Dosage: 4 GRAM DAILY; TWICE PER DAY
     Route: 042
     Dates: start: 20210120, end: 20210125
  85. VASELINE PURE [Concomitant]
     Active Substance: PETROLATUM
     Indication: RASH MACULO-PAPULAR
     Dosage: 2 DOSAGE FORMS DAILY; TWICE PER DAY
     Route: 061
     Dates: start: 20210120, end: 20210122
  86. VALACICLOVIR [Concomitant]
     Active Substance: VALACYCLOVIR HYDROCHLORIDE
     Dosage: 500 MILLIGRAM DAILY; ONCE DAILY
     Route: 048
     Dates: start: 20210123, end: 20210125
  87. OXYCODONE [Concomitant]
     Active Substance: OXYCODONE
     Dosage: 5 MILLIGRAM DAILY; ONCE DAILY
     Route: 048
     Dates: start: 20210124, end: 20210125
  88. FOSAPREPITANT [Concomitant]
     Active Substance: FOSAPREPITANT
     Indication: CHEMOTHERAPY SIDE EFFECT PROPHYLAXIS
     Dosage: 150 MILLIGRAM DAILY; ONCE DAILY
     Route: 042
     Dates: start: 20210106, end: 20210106
  89. FIDAXOMICIN [Concomitant]
     Active Substance: FIDAXOMICIN
     Indication: ENTEROCOLITIS INFECTIOUS
     Dosage: 400 MILLIGRAM DAILY;
     Route: 048
  90. VANCOMYCINE [Concomitant]
     Active Substance: VANCOMYCIN
     Dosage: 500 MILLIGRAM DAILY; ONCE DAILY
     Route: 042
     Dates: start: 20210115, end: 20210115
  91. ONDANSETRON [Concomitant]
     Active Substance: ONDANSETRON
     Dosage: AS NEEDED
     Route: 048
     Dates: start: 20210122, end: 20210124
  92. MESNA. [Concomitant]
     Active Substance: MESNA
     Indication: CYSTITIS NONINFECTIVE
     Dosage: ONCE
     Route: 042
     Dates: start: 20210106, end: 20210107
  93. ACETAMINOPHEN. [Concomitant]
     Active Substance: ACETAMINOPHEN
     Indication: BLADDER SPASM
     Dosage: AS NEEDED
     Route: 048
     Dates: start: 20210116, end: 20210125
  94. LEVOFLOXACINE [Concomitant]
     Active Substance: LEVOFLOXACIN
     Dosage: 125 MILLIGRAM DAILY; TWICE PER DAY
     Route: 048
     Dates: start: 20210115, end: 20210118
  95. LEVOTHYROXINE. [Concomitant]
     Active Substance: LEVOTHYROXINE
     Dosage: 100 MICROGRAM DAILY; ONCE DAILY
     Route: 048
     Dates: start: 20200612, end: 20210119
  96. TROSPIUM [Concomitant]
     Active Substance: TROSPIUM
     Indication: BLADDER SPASM
     Dosage: 40 MILLIGRAM DAILY; AS NEEDED
     Route: 048
     Dates: start: 20210117, end: 20210119
  97. OXYCODONE [Concomitant]
     Active Substance: OXYCODONE
     Dosage: 10 MILLIGRAM DAILY; TWICE PER DAY
     Route: 048
     Dates: start: 20210116, end: 20210124
  98. ATOVAQUONE. [Concomitant]
     Active Substance: ATOVAQUONE
     Indication: INFECTION PROPHYLAXIS
     Dosage: 1500 MILLIGRAM DAILY;
     Route: 048

REACTIONS (1)
  - Cytokine release syndrome [Recovered/Resolved]

NARRATIVE: CASE EVENT DATE: 20210129
